FAERS Safety Report 21089118 (Version 1)
Quarter: 2022Q3

REPORT INFORMATION
  Report Type: Report from Study
  Country: US (occurrence: US)
  Receive Date: 20220715
  Receipt Date: 20220715
  Transmission Date: 20221027
  Serious: No
  Sender: FDA-Public Use
  Company Number: US-BIOVITRUM-2022US07705

PATIENT
  Sex: Male

DRUGS (1)
  1. KINERET [Suspect]
     Active Substance: ANAKINRA
     Indication: Product used for unknown indication
     Dates: start: 20220225

REACTIONS (7)
  - Presyncope [Unknown]
  - Insomnia [Recovering/Resolving]
  - Nervousness [Unknown]
  - Visual impairment [Unknown]
  - Injection site bruising [Unknown]
  - Injection site discolouration [Unknown]
  - Drug ineffective [Unknown]
